FAERS Safety Report 9082395 (Version 1)
Quarter: 2013Q1

REPORT INFORMATION
  Report Type: Report from Study
  Country: US (occurrence: US)
  Receive Date: 20130131
  Receipt Date: 20130131
  Transmission Date: 20140127
  Serious: No
  Sender: FDA-Public Use
  Company Number: US-ABBOTT-12P-163-0994097-00

PATIENT
  Age: 48 Year
  Sex: Female

DRUGS (6)
  1. HUMIRA [Suspect]
     Indication: MIXED CONNECTIVE TISSUE DISEASE
  2. METHOTREXATE [Concomitant]
     Indication: MIXED CONNECTIVE TISSUE DISEASE
     Dosage: 0.8 CC WEEKLY
  3. PLAQUENIL [Concomitant]
     Indication: MIXED CONNECTIVE TISSUE DISEASE
     Dosage: 200 MG, 2 TABS A DAY
  4. PREDNISONE [Concomitant]
     Indication: MIXED CONNECTIVE TISSUE DISEASE
     Dosage: 5 MG, 1/2 TAB EVERY OTHER DAY
  5. VENLAFAXINE [Concomitant]
     Indication: DEPRESSION
  6. OMEGA 3 [Concomitant]
     Indication: SUPPLEMENTATION THERAPY
     Dosage: ONE, EVERY OTHER DAY

REACTIONS (6)
  - Injection site bruising [Recovered/Resolved]
  - Nasopharyngitis [Recovered/Resolved]
  - Sneezing [Recovered/Resolved]
  - Oral herpes [Recovered/Resolved]
  - Hypersensitivity [Recovered/Resolved]
  - Inappropriate schedule of drug administration [Recovered/Resolved]
